FAERS Safety Report 25846572 (Version 1)
Quarter: 2025Q3

REPORT INFORMATION
  Report Type: Spontaneous
  Country: US (occurrence: None)
  Receive Date: 20250924
  Receipt Date: 20250924
  Transmission Date: 20251020
  Serious: Yes (Hospitalization)
  Sender: FDA-CTU
  Company Number: None

PATIENT
  Age: 46 Year
  Sex: Female

DRUGS (1)
  1. TYMLOS [Suspect]
     Active Substance: ABALOPARATIDE
     Indication: Senile osteoporosis
     Dosage: FREQUENCY : DAILY;?STRENGTH: 3120MCG/1.56ML
     Route: 058

REACTIONS (4)
  - Diarrhoea [None]
  - Dehydration [None]
  - Sepsis [None]
  - Dyspnoea [None]
